FAERS Safety Report 12587264 (Version 1)
Quarter: 2016Q3

REPORT INFORMATION
  Report Type: Report from Study
  Country: DE (occurrence: DE)
  Receive Date: 20160725
  Receipt Date: 20160725
  Transmission Date: 20161109
  Serious: Yes (Disabling, Other)
  Sender: FDA-Public Use
  Company Number: DE-ROCHE-1799107

PATIENT
  Weight: .42 kg

DRUGS (4)
  1. OXYBUPROCAINE [Concomitant]
     Active Substance: BENOXINATE
     Route: 065
  2. BEVACIZUMAB [Suspect]
     Active Substance: BEVACIZUMAB
     Indication: RETINOPATHY OF PREMATURITY
     Route: 050
  3. OCTENIDINE [Concomitant]
     Active Substance: OCTENIDINE
  4. PROPOFOL. [Concomitant]
     Active Substance: PROPOFOL
     Indication: SEDATION

REACTIONS (2)
  - Keratitis [Not Recovered/Not Resolved]
  - Corneal opacity [Not Recovered/Not Resolved]
